FAERS Safety Report 7845880-2 (Version None)
Quarter: 2011Q4

REPORT INFORMATION
  Report Type: 
  Country: None (occurrence: None)
  Receive Date: 20111025
  Receipt Date: 20111021
  Transmission Date: 20120403
  Serious: Yes (Life-Threatening, Other)
  Sender: FDA-Public Use
  Company Number: US-ASTRAZENECA-2011SE38721

PATIENT
  Age: 57 Year
  Sex: Female
  Weight: 68.5 kg

DRUGS (11)
  1. FLEXERIL [Concomitant]
     Dosage: 10 MG, THREE TIMES A DAY, PRN
  2. PERCOCET [Concomitant]
     Dosage: ONE PILL, EVERY SIX HOURS, PRN
  3. VISTARIL [Concomitant]
  4. NEXIUM [Suspect]
     Indication: GASTROOESOPHAGEAL REFLUX DISEASE
     Route: 048
     Dates: start: 20020705
  5. SYNTHROID [Concomitant]
     Indication: HYPOTHYROIDISM
     Route: 048
     Dates: start: 19920402
  6. TEGRETOL [Concomitant]
     Indication: BIPOLAR DISORDER
     Route: 048
  7. TEGRETOL [Concomitant]
  8. LEXAPRO [Concomitant]
  9. SPIRIVA [Concomitant]
     Indication: CHRONIC OBSTRUCTIVE PULMONARY DISEASE
     Dosage: EVERY DAY
     Route: 055
     Dates: start: 20071201
  10. ANEXSIA [Concomitant]
     Dosage: ONE PILL, EVERY SIX HOURS, PRN
  11. TEGRETOL [Concomitant]

REACTIONS (2)
  - ACUTE MYOCARDIAL INFARCTION [None]
  - ISCHAEMIC CARDIOMYOPATHY [None]
